FAERS Safety Report 5275924-6 (Version None)
Quarter: 2007Q1

REPORT INFORMATION
  Report Type: 
  Country: None (occurrence: None)
  Receive Date: 20070326
  Receipt Date: 20070312
  Transmission Date: 20070707
  Serious: Yes (Other)
  Sender: FDA-Public Use
  Company Number: US-ROCHE-486740

PATIENT
  Sex: Female

DRUGS (1)
  1. VALIUM [Suspect]
     Indication: DRUG USE FOR UNKNOWN INDICATION
     Dosage: PATIENT REPORTED TAKING UP TO THIRTY 5 MG VALIUM PER DAY.
     Route: 065
     Dates: end: 20061216

REACTIONS (4)
  - DRUG ABUSER [None]
  - DRUG SCREEN POSITIVE [None]
  - HEPATITIS [None]
  - HEPATOCELLULAR DAMAGE [None]
